FAERS Safety Report 25899860 (Version 2)
Quarter: 2025Q4

REPORT INFORMATION
  Report Type: Report from Study
  Country: US (occurrence: None)
  Receive Date: 20251009
  Receipt Date: 20251024
  Transmission Date: 20260118
  Serious: Yes (Hospitalization, Other)
  Sender: UCB
  Company Number: US-UCBSA-2025063283

PATIENT

DRUGS (1)
  1. BRIVARACETAM [Suspect]
     Active Substance: BRIVARACETAM
     Indication: Epilepsy
     Dosage: 100 MILLIGRAM, 2X/DAY (BID)

REACTIONS (5)
  - Partial seizures [Unknown]
  - Seizure [Not Recovered/Not Resolved]
  - Brain operation [Unknown]
  - Drug dependence [Unknown]
  - Therapeutic product effect incomplete [Unknown]
